FAERS Safety Report 7039672-4 (Version None)
Quarter: 2010Q4

REPORT INFORMATION
  Report Type: 
  Country: None (occurrence: None)
  Receive Date: 20101012
  Receipt Date: 20101005
  Transmission Date: 20110411
  Serious: Yes (Hospitalization)
  Sender: FDA-Public Use
  Company Number: B0678878A

PATIENT
  Age: 21 Year
  Sex: Male

DRUGS (3)
  1. PARACETAMOL [Suspect]
  2. AMOXICILLIN [Suspect]
  3. HERBAL TEA [Suspect]

REACTIONS (7)
  - ANAEMIA [None]
  - CHEILITIS [None]
  - HEART RATE INCREASED [None]
  - PIGMENTATION DISORDER [None]
  - PYREXIA [None]
  - RESPIRATORY RATE INCREASED [None]
  - TOXIC EPIDERMAL NECROLYSIS [None]
